FAERS Safety Report 24354694 (Version 2)
Quarter: 2024Q3

REPORT INFORMATION
  Report Type: Spontaneous
  Country: JP (occurrence: JP)
  Receive Date: 20240923
  Receipt Date: 20240925
  Transmission Date: 20241017
  Serious: Yes (Other)
  Sender: MERCK
  Company Number: JP-MSD-M2024-06151

PATIENT
  Age: 71 Year
  Sex: Male

DRUGS (4)
  1. KEYTRUDA [Suspect]
     Active Substance: PEMBROLIZUMAB
     Indication: Renal cell carcinoma
     Dosage: 200 MILLIGRAM, Q3W
     Route: 041
     Dates: start: 20240131, end: 202407
  2. LENVATINIB MESYLATE [Suspect]
     Active Substance: LENVATINIB MESYLATE
     Indication: Renal cell carcinoma
     Dosage: 20 MILLIGRAM
     Route: 048
     Dates: start: 20240131, end: 202402
  3. LENVATINIB MESYLATE [Suspect]
     Active Substance: LENVATINIB MESYLATE
     Dosage: 20 MILLIGRAM
     Route: 048
     Dates: start: 2024, end: 202407
  4. LENVATINIB MESYLATE [Suspect]
     Active Substance: LENVATINIB MESYLATE
     Dosage: 14 MILLIGRAM
     Route: 048
     Dates: start: 202407, end: 202407

REACTIONS (5)
  - Blindness unilateral [Not Recovered/Not Resolved]
  - Malignant neoplasm progression [Unknown]
  - Optic neuritis [Unknown]
  - Dysphonia [Recovering/Resolving]
  - Autoantibody positive [Unknown]

NARRATIVE: CASE EVENT DATE: 20240101
